FAERS Safety Report 8819064 (Version 2)
Quarter: 2012Q4

REPORT INFORMATION
  Report Type: 
  Country: TR (occurrence: TR)
  Receive Date: 20121001
  Receipt Date: 20121008
  Transmission Date: 20130627
  Serious: Yes (Hospitalization, Other)
  Sender: FDA-Public Use
  Company Number: TR-RANBAXY-2012RR-60544

PATIENT
  Age: 6 Year
  Sex: Female

DRUGS (1)
  1. MIDAZOLAM [Suspect]
     Indication: SEDATION
     Dosage: 0.2 mg/kg, UNK
     Route: 042

REACTIONS (1)
  - Dystonia [Recovered/Resolved]
